FAERS Safety Report 5924679-8 (Version None)
Quarter: 2008Q4

REPORT INFORMATION
  Report Type: 
  Country: None (occurrence: None)
  Receive Date: 20081020
  Receipt Date: 20080929
  Transmission Date: 20090506
  Serious: Yes (Disabling, Other)
  Sender: FDA-Public Use
  Company Number: JP-MERCK-0806USA01446

PATIENT
  Age: 64 Year
  Sex: Female

DRUGS (8)
  1. FOSAMAX [Suspect]
     Indication: OSTEOPOROSIS
     Route: 048
     Dates: start: 20080228, end: 20080530
  2. FOSAMAX [Suspect]
     Route: 048
     Dates: start: 20080718, end: 20080919
  3. ONEALFA [Concomitant]
     Indication: OSTEOPOROSIS
     Route: 048
     Dates: start: 20080228, end: 20080530
  4. ONEALFA [Concomitant]
     Route: 048
     Dates: start: 20080718, end: 20080919
  5. ELCITONIN [Concomitant]
     Route: 051
     Dates: start: 20080228, end: 20080731
  6. TOCLASE TABLETS [Concomitant]
     Indication: EMPYEMA
     Route: 048
     Dates: start: 20080401
  7. METHISTA [Concomitant]
     Indication: EMPYEMA
     Route: 048
     Dates: start: 20080401
  8. ROXITHROMYCIN [Concomitant]
     Indication: EMPYEMA
     Route: 048
     Dates: start: 20080401

REACTIONS (2)
  - NAIL DISCOLOURATION [None]
  - ONYCHOCLASIS [None]
